FAERS Safety Report 5189804-8 (Version None)
Quarter: 2006Q4

REPORT INFORMATION
  Report Type: 
  Country: None (occurrence: None)
  Receive Date: 20061218
  Receipt Date: 20061130
  Transmission Date: 20070319
  Serious: Yes (Hospitalization)
  Sender: FDA-Public Use
  Company Number: 2006002263

PATIENT
  Age: 51 Year
  Sex: Female
  Weight: 97.5234 kg

DRUGS (2)
  1. ERLOTINIB (TABLET) (ERLOTINIB HCL) [Suspect]
     Indication: BREAST CANCER METASTATIC
     Dosage: 150 MG (QD), ORAL
     Route: 048
     Dates: start: 20060620
  2. DOCETAXEL (DOCETAXEL) (INJECTION FOR INFUSION) [Suspect]
     Indication: BREAST CANCER METASTATIC
     Dosage: 60 MG (Q 3 WK), INTRAVENOUS
     Route: 042
     Dates: start: 20060620

REACTIONS (4)
  - ABDOMINAL DISTENSION [None]
  - ASCITES [None]
  - ASTHENIA [None]
  - FATIGUE [None]
